FAERS Safety Report 5919498-2 (Version None)
Quarter: 2008Q3

REPORT INFORMATION
  Report Type: 
  Country: None (occurrence: None)
  Receive Date: 20080909
  Receipt Date: 20070716
  Transmission Date: 20090109
  Serious: Yes (Hospitalization)
  Sender: FDA-Public Use
  Company Number: 163-20785-07041482

PATIENT
  Age: 72 Year
  Sex: Female

DRUGS (3)
  1. THALOMID [Suspect]
     Indication: MULTIPLE MYELOMA
     Dosage: 100 MG, QD, ORAL
     Route: 048
     Dates: start: 20060202, end: 20060210
  2. METOPROLOL TARTRATE [Concomitant]
  3. GLYBURIDE [Concomitant]

REACTIONS (3)
  - CONSTIPATION [None]
  - ILEUS [None]
  - NEUROPATHY PERIPHERAL [None]
